FAERS Safety Report 19115051 (Version 1)
Quarter: 2021Q2

REPORT INFORMATION
  Report Type: Other
  Country: IT (occurrence: IT)
  Receive Date: 20210408
  Receipt Date: 20210408
  Transmission Date: 20210717
  Serious: Yes (Other)
  Sender: FDA-Public Use
  Company Number: IT-VALIDUS PHARMACEUTICALS LLC-IT-2021VAL000185

PATIENT
  Age: 64 Year
  Sex: Female

DRUGS (1)
  1. LASIX [Suspect]
     Active Substance: FUROSEMIDE
     Indication: HYPERTENSION
     Dosage: 2 DF, UNK
     Route: 030
     Dates: start: 20170719, end: 20170719

REACTIONS (5)
  - Syncope [Recovering/Resolving]
  - Subarachnoid haemorrhage [Recovering/Resolving]
  - Head injury [Recovering/Resolving]
  - Wound [Recovering/Resolving]
  - Orthostatic hypotension [Recovering/Resolving]
